FAERS Safety Report 16171743 (Version 1)
Quarter: 2019Q2

REPORT INFORMATION
  Report Type: Spontaneous
  Country: US (occurrence: US)
  Receive Date: 20190408
  Receipt Date: 20190408
  Transmission Date: 20190711
  Serious: No
  Sender: FDA-Public Use
  Company Number: PHEH2019US014323

PATIENT
  Sex: Male

DRUGS (1)
  1. OMNITROPE [Suspect]
     Active Substance: SOMATROPIN
     Indication: HYPOPITUITARISM
     Dosage: 0.8 MG, OT (INJECT 0.8MG SUBCUTANEOUSLY 6 DAYS PER WEEK)
     Route: 058
     Dates: start: 201811

REACTIONS (1)
  - Arthralgia [Not Recovered/Not Resolved]
